FAERS Safety Report 13044416 (Version 1)
Quarter: 2016Q4

REPORT INFORMATION
  Report Type: Spontaneous
  Country: US (occurrence: US)
  Receive Date: 20161219
  Receipt Date: 20161219
  Transmission Date: 20170207
  Serious: No
  Sender: FDA-Public Use
  Company Number: None

PATIENT
  Age: 34 Year
  Sex: Female
  Weight: 103.5 kg

DRUGS (5)
  1. MULTIVITAMIN [Concomitant]
     Active Substance: VITAMINS
  2. LEXAPRO [Concomitant]
     Active Substance: ESCITALOPRAM OXALATE
  3. ADDERALL [Concomitant]
     Active Substance: AMPHETAMINE ASPARTATE\AMPHETAMINE SULFATE\DEXTROAMPHETAMINE SACCHARATE\DEXTROAMPHETAMINE SULFATE
  4. MOTRIN [Concomitant]
     Active Substance: IBUPROFEN
  5. BUTRANS [Suspect]
     Active Substance: BUPRENORPHINE
     Indication: ARTHRITIS
     Dosage: 10 UCG 4 PATCH(ES) WEEKLY TRANSDERMAL
     Route: 062
     Dates: start: 20161214, end: 20161219

REACTIONS (5)
  - Product colour issue [None]
  - Application site pain [None]
  - Application site pruritus [None]
  - Product contamination microbial [None]
  - Drug ineffective [None]

NARRATIVE: CASE EVENT DATE: 20161215
